FAERS Safety Report 23304395 (Version 3)
Quarter: 2024Q1

REPORT INFORMATION
  Report Type: Spontaneous
  Country: US (occurrence: US)
  Receive Date: 20231218
  Receipt Date: 20240118
  Transmission Date: 20240410
  Serious: Yes (Hospitalization, Other)
  Sender: FDA-Public Use
  Company Number: US-MLMSERVICE-20231128-4695077-1

PATIENT
  Age: 50 Year
  Sex: Female

DRUGS (5)
  1. TRIAMCINOLONE [Suspect]
     Active Substance: TRIAMCINOLONE
     Indication: Greater trochanteric pain syndrome
     Dosage: UNK
     Route: 065
  2. TRIAMCINOLONE [Suspect]
     Active Substance: TRIAMCINOLONE
     Indication: Bursitis
     Dosage: 80 MILLIGRAM
     Route: 065
  3. LIDOCAINE [Suspect]
     Active Substance: LIDOCAINE
     Indication: Soft tissue atrophy
     Dosage: UNK (10 ML)
     Route: 065
  4. EPINEPHRINE [Suspect]
     Active Substance: EPINEPHRINE
     Indication: Soft tissue atrophy
     Dosage: UNK
     Route: 065
  5. SODIUM CHLORIDE [Suspect]
     Active Substance: SODIUM CHLORIDE
     Indication: Soft tissue atrophy
     Dosage: 80 MILLILITER
     Route: 065

REACTIONS (4)
  - Injection site atrophy [Recovered/Resolved]
  - Soft tissue atrophy [Recovered/Resolved]
  - Cutaneous contour deformity [Recovered/Resolved]
  - Drug ineffective [Unknown]
